FAERS Safety Report 5289861-4 (Version None)
Quarter: 2007Q2

REPORT INFORMATION
  Report Type: 
  Country: None (occurrence: None)
  Receive Date: 20070406
  Receipt Date: 20070328
  Transmission Date: 20071010
  Serious: Yes (Hospitalization, Other)
  Sender: FDA-Public Use
  Company Number: US-PFIZER INC-2006123275

PATIENT
  Sex: Female
  Weight: 52 kg

DRUGS (4)
  1. DEPO-PROVERA [Suspect]
     Indication: CONTRACEPTION
     Route: 030
  2. DEPO-PROVERA [Suspect]
     Indication: ENDOMETRIOSIS
  3. PROTONIX [Concomitant]
  4. ATENOLOL [Concomitant]

REACTIONS (1)
  - PANCREATITIS [None]
